FAERS Safety Report 7821688-9 (Version None)
Quarter: 2011Q4

REPORT INFORMATION
  Report Type: 
  Country: None (occurrence: None)
  Receive Date: 20111018
  Receipt Date: 20111014
  Transmission Date: 20120403
  Serious: No
  Sender: FDA-Public Use
  Company Number: US-B.I. PHARMACEUTICALS,INC./RIDGEFIELD-2011-BP-23031BP

PATIENT
  Age: 68 Year
  Sex: Female

DRUGS (12)
  1. PRADAXA [Suspect]
     Indication: ATRIAL FIBRILLATION
     Dosage: 150 MG
     Route: 048
     Dates: start: 20110801
  2. LEVOXYL [Concomitant]
     Indication: THYROIDECTOMY
     Dates: start: 19960101
  3. FENOFIBRATE [Concomitant]
     Indication: BLOOD CHOLESTEROL ABNORMAL
  4. BUSPAR [Concomitant]
     Indication: ANXIETY
  5. PRADAXA [Suspect]
     Dosage: 300 MG
  6. LEVOXYL [Concomitant]
     Indication: THYROID DISORDER
  7. ASPIRIN [Concomitant]
     Indication: PROPHYLAXIS
     Dosage: 81 MG
     Route: 048
  8. TOPROL-XL [Concomitant]
     Indication: ATRIAL FIBRILLATION
  9. SOTALOL HCL [Concomitant]
     Indication: ATRIAL FIBRILLATION
     Dosage: 60 MG
     Route: 048
     Dates: start: 20080101
  10. ZANTAC [Concomitant]
  11. METFORMIN HCL [Concomitant]
     Indication: DIABETES MELLITUS
     Dosage: 500 MG
     Route: 048
     Dates: start: 20080101
  12. TOPROL-XL [Concomitant]
     Indication: HYPERTENSION
     Dosage: 25 MG
     Route: 048
     Dates: start: 20070101

REACTIONS (9)
  - ABDOMINAL DISCOMFORT [None]
  - ALOPECIA [None]
  - HYPOAESTHESIA ORAL [None]
  - DIZZINESS [None]
  - LETHARGY [None]
  - BLOOD PRESSURE INCREASED [None]
  - ANXIETY [None]
  - CONSTIPATION [None]
  - AGITATION [None]
